FAERS Safety Report 18623970 (Version 1)
Quarter: 2020Q4

REPORT INFORMATION
  Report Type: Spontaneous
  Country: CN (occurrence: CN)
  Receive Date: 20201216
  Receipt Date: 20201216
  Transmission Date: 20210114
  Serious: Yes (Other)
  Sender: FDA-Public Use
  Company Number: CN-ASTRAZENECA-2020SF66150

PATIENT
  Age: 23376 Day
  Sex: Male
  Weight: 77 kg

DRUGS (3)
  1. PULMICORT RESPULES [Suspect]
     Active Substance: BUDESONIDE
     Indication: OBSTRUCTIVE AIRWAYS DISORDER
     Route: 055
     Dates: start: 20201027, end: 20201027
  2. FLUIMUCIL [Suspect]
     Active Substance: ACETYLCYSTEINE
     Indication: OBSTRUCTIVE AIRWAYS DISORDER
     Route: 055
     Dates: start: 20201027, end: 20201027
  3. BRICANYL [Suspect]
     Active Substance: TERBUTALINE SULFATE
     Indication: OBSTRUCTIVE AIRWAYS DISORDER
     Route: 055
     Dates: start: 20201027, end: 20201027

REACTIONS (5)
  - Chest pain [Recovering/Resolving]
  - Cyanosis [Recovering/Resolving]
  - Chest discomfort [Recovering/Resolving]
  - Blood pressure decreased [Recovering/Resolving]
  - Oxygen saturation decreased [Recovering/Resolving]

NARRATIVE: CASE EVENT DATE: 20201027
